FAERS Safety Report 7391432-0 (Version None)
Quarter: 2011Q2

REPORT INFORMATION
  Report Type: 
  Country: None (occurrence: None)
  Receive Date: 20110404
  Receipt Date: 20110324
  Transmission Date: 20111010
  Serious: Yes (Death, Hospitalization, Other)
  Sender: FDA-Public Use
  Company Number: US-ALEXION-A201100008

PATIENT
  Sex: Male
  Weight: 61.678 kg

DRUGS (3)
  1. SOLIRIS [Suspect]
     Dosage: 900 MG, Q2W
     Route: 042
     Dates: start: 20101024, end: 20101111
  2. SOLIRIS [Suspect]
     Indication: PAROXYSMAL NOCTURNAL HAEMOGLOBINURIA
     Dosage: 600 MG, QW
     Route: 042
     Dates: start: 20100928, end: 20101013
  3. ALIMTA [Suspect]
     Indication: LUNG CANCER METASTATIC
     Dosage: UNK
     Dates: start: 20101124

REACTIONS (4)
  - CANDIDA SEPSIS [None]
  - NEUTROPENIA [None]
  - NEOPLASM MALIGNANT [None]
  - STAPHYLOCOCCAL BACTERAEMIA [None]
